FAERS Safety Report 5274714-8 (Version None)
Quarter: 2007Q1

REPORT INFORMATION
  Report Type: 
  Country: None (occurrence: None)
  Receive Date: 20070320
  Receipt Date: 20070309
  Transmission Date: 20070707
  Serious: Yes (Life-Threatening, Hospitalization)
  Sender: FDA-Public Use
  Company Number: 2007RL000102

PATIENT
  Sex: Male

DRUGS (3)
  1. OMACOR [Suspect]
     Dates: start: 20060222
  2. AMICAR [Suspect]
  3. PLATELET INHIBITOR [Concomitant]

REACTIONS (5)
  - DRUG DISPENSING ERROR [None]
  - IN-STENT ARTERIAL RESTENOSIS [None]
  - MEDICATION ERROR [None]
  - MYOCARDIAL INFARCTION [None]
  - WRONG DRUG ADMINISTERED [None]
